FAERS Safety Report 9454189 (Version 1)
Quarter: 2013Q3

REPORT INFORMATION
  Report Type: Spontaneous
  Country: US (occurrence: None)
  Receive Date: 20130809
  Receipt Date: 20130809
  Transmission Date: 20140515
  Serious: No
  Sender: FDA-Public Use
  Company Number: None

PATIENT
  Age: 59 Year
  Sex: Male
  Weight: 108.86 kg

DRUGS (1)
  1. CIPRO [Suspect]
     Route: 048
     Dates: start: 20130401, end: 20130602

REACTIONS (3)
  - Ureteritis [None]
  - Epididymitis [None]
  - Tendon rupture [None]
